FAERS Safety Report 4541319-3 (Version None)
Quarter: 2004Q4

REPORT INFORMATION
  Report Type: 
  Country: None (occurrence: None)
  Receive Date: 20041222
  Receipt Date: 20041216
  Transmission Date: 20050328
  Serious: Yes (Death)
  Sender: FDA-Public Use
  Company Number: 2004US001312

PATIENT
  Age: 51 Year
  Sex: Female

DRUGS (11)
  1. AMBISOME [Suspect]
     Indication: FEBRILE NEUTROPENIA
     Dosage: 250.00 MG, UID/QD, INTRAVENOUS
     Route: 042
     Dates: start: 20041021, end: 20041022
  2. AMBISOME [Suspect]
     Indication: PYREXIA
     Dosage: 250.00 MG, UID/QD, INTRAVENOUS
     Route: 042
     Dates: start: 20041021, end: 20041022
  3. TIENAM (IMIPENEM, CILASTATIN, CILASTATIN SODIUM) [Concomitant]
  4. AMIKIN [Concomitant]
  5. CIPROFLOXACIN [Concomitant]
  6. VANCOCIN HCL [Concomitant]
  7. BACTRIM DS [Concomitant]
  8. ABELCET [Concomitant]
  9. IDARUBICIN HCL [Concomitant]
  10. CYTARABINE [Concomitant]
  11. ETOPOSIDE [Concomitant]

REACTIONS (4)
  - BODY TEMPERATURE INCREASED [None]
  - CARDIAC ARREST [None]
  - CHILLS [None]
  - PLATELET COUNT DECREASED [None]
